FAERS Safety Report 19018608 (Version 13)
Quarter: 2021Q3

REPORT INFORMATION
  Report Type: Spontaneous
  Country: GB (occurrence: GB)
  Receive Date: 20210317
  Receipt Date: 20210817
  Transmission Date: 20211014
  Serious: Yes (Other)
  Sender: FDA-Public Use
  Company Number: GB-JNJFOC-20210236932

PATIENT
  Age: 30 Year
  Sex: Male

DRUGS (19)
  1. HALOPERIDOL. [Suspect]
     Active Substance: HALOPERIDOL
     Indication: PRODUCT USED FOR UNKNOWN INDICATION
     Route: 048
     Dates: start: 20201229, end: 20201230
  2. HALOPERIDOL. [Suspect]
     Active Substance: HALOPERIDOL
     Route: 042
     Dates: start: 20201229, end: 20201230
  3. DOZILE [Suspect]
     Active Substance: DOXYLAMINE SUCCINATE
     Indication: PRODUCT USED FOR UNKNOWN INDICATION
     Route: 042
     Dates: start: 20201229, end: 20201230
  4. QUETIAPINE. [Suspect]
     Active Substance: QUETIAPINE
     Indication: PRODUCT USED FOR UNKNOWN INDICATION
     Route: 048
     Dates: start: 20201230, end: 20201230
  5. QUETIAPINE. [Suspect]
     Active Substance: QUETIAPINE
     Route: 048
     Dates: start: 20201230, end: 20201230
  6. HALOPERIDOL. [Suspect]
     Active Substance: HALOPERIDOL
     Route: 042
     Dates: start: 20201229, end: 20201230
  7. CYCLIZINE [Suspect]
     Active Substance: CYCLIZINE
     Indication: PRODUCT USED FOR UNKNOWN INDICATION
     Route: 042
     Dates: start: 20201230, end: 20201230
  8. HALOPERIDOL. [Suspect]
     Active Substance: HALOPERIDOL
     Route: 065
     Dates: start: 20201229, end: 20201230
  9. QUETIAPINE FUMARATE. [Suspect]
     Active Substance: QUETIAPINE FUMARATE
     Indication: PRODUCT USED FOR UNKNOWN INDICATION
     Route: 048
     Dates: start: 20201230, end: 20201230
  10. HALDOL DECANOAS [Suspect]
     Active Substance: HALOPERIDOL DECANOATE
     Indication: PRODUCT USED FOR UNKNOWN INDICATION
     Route: 042
     Dates: start: 20201229, end: 20201230
  11. HALOPERIDOL. [Suspect]
     Active Substance: HALOPERIDOL
     Route: 065
     Dates: start: 20201229, end: 20201230
  12. QUETIAPINE FUMARATE. [Suspect]
     Active Substance: QUETIAPINE FUMARATE
     Indication: PRODUCT USED FOR UNKNOWN INDICATION
     Route: 048
     Dates: start: 20201230, end: 20201230
  13. DOZIC [PARACETAMOL] [Suspect]
     Active Substance: ACETAMINOPHEN
     Indication: PRODUCT USED FOR UNKNOWN INDICATION
     Route: 042
     Dates: start: 20201229, end: 20201230
  14. HALOPERIDOL. [Suspect]
     Active Substance: HALOPERIDOL
     Route: 048
     Dates: start: 20201229, end: 20201230
  15. CYCLIZINE HYDROCHLORIDE [Suspect]
     Active Substance: CYCLIZINE HYDROCHLORIDE
     Indication: PRODUCT USED FOR UNKNOWN INDICATION
     Route: 042
     Dates: start: 20201230, end: 20201230
  16. CYCLIZINE [Suspect]
     Active Substance: CYCLIZINE
     Route: 065
     Dates: start: 20201230, end: 20201230
  17. CYCLIZINE HYDROCHLORIDE [Suspect]
     Active Substance: CYCLIZINE HYDROCHLORIDE
     Route: 042
     Dates: start: 20201230, end: 20201230
  18. DOZIC [PARACETAMOL] [Suspect]
     Active Substance: ACETAMINOPHEN
     Route: 065
     Dates: start: 20201229, end: 20201230
  19. CYCLIZINE [Suspect]
     Active Substance: CYCLIZINE
     Route: 042
     Dates: start: 20201230, end: 20201230

REACTIONS (5)
  - Bruxism [Recovered/Resolved]
  - Incorrect route of product administration [Unknown]
  - Off label use [Unknown]
  - Tongue disorder [Recovered/Resolved]
  - Dystonia [Recovered/Resolved]

NARRATIVE: CASE EVENT DATE: 20201229
